FAERS Safety Report 5814781-3 (Version None)
Quarter: 2008Q3

REPORT INFORMATION
  Report Type: 
  Country: None (occurrence: None)
  Receive Date: 20080718
  Receipt Date: 20080709
  Transmission Date: 20090109
  Serious: Yes (Other)
  Sender: FDA-Public Use
  Company Number: GB-ABBOTT-08P-167-0461960-00

PATIENT

DRUGS (2)
  1. HUMIRA [Suspect]
     Indication: UVEITIS
     Route: 058
  2. STEROIDS UNSPECIFIED [Concomitant]
     Indication: DRUG USE FOR UNKNOWN INDICATION
     Dosage: RECENTLY BEEN INCREASED

REACTIONS (1)
  - HYPERTENSION [None]
